FAERS Safety Report 5129157-4 (Version None)
Quarter: 2006Q4

REPORT INFORMATION
  Report Type: 
  Country: None (occurrence: None)
  Receive Date: 20061011
  Receipt Date: 20060926
  Transmission Date: 20070319
  Serious: Yes (Other)
  Sender: FDA-Public Use
  Company Number: DE-2006-028235

PATIENT
  Sex: Female
  Weight: 41 kg

DRUGS (1)
  1. BETAFERON [Suspect]
     Dosage: SUBCUTANEOUS
     Route: 058
     Dates: start: 20020101

REACTIONS (1)
  - WEIGHT DECREASED [None]
